FAERS Safety Report 12674373 (Version 1)
Quarter: 2016Q3

REPORT INFORMATION
  Report Type: Spontaneous
  Country: US (occurrence: US)
  Receive Date: 20160822
  Receipt Date: 20160822
  Transmission Date: 20161109
  Serious: No
  Sender: FDA-Public Use
  Company Number: US-BEH-2015056684

PATIENT
  Sex: Female

DRUGS (29)
  1. AZITHROMYCIN ANHYDROUS. [Concomitant]
     Active Substance: AZITHROMYCIN ANHYDROUS
  2. ZOLOFT [Concomitant]
     Active Substance: SERTRALINE HYDROCHLORIDE
  3. FOLIC ACID. [Concomitant]
     Active Substance: FOLIC ACID
  4. SPIRIVA [Concomitant]
     Active Substance: TIOTROPIUM BROMIDE MONOHYDRATE
  5. SINGULAIR [Concomitant]
     Active Substance: MONTELUKAST SODIUM
  6. PREDNISONE. [Concomitant]
     Active Substance: PREDNISONE
  7. ASPIRIN. [Concomitant]
     Active Substance: ASPIRIN
  8. XANAX [Concomitant]
     Active Substance: ALPRAZOLAM
  9. CALCIUM WITH VITAMIN D [Concomitant]
     Active Substance: CALCIUM\VITAMIN D
  10. MEDROL [Concomitant]
     Active Substance: METHYLPREDNISOLONE
  11. ASMANEX [Concomitant]
     Active Substance: MOMETASONE FUROATE
  12. CLOTRIMAZOLE. [Concomitant]
     Active Substance: CLOTRIMAZOLE
     Dosage: FOOT CREAM
  13. OXYGEN. [Concomitant]
     Active Substance: OXYGEN
  14. ALBUTEROL. [Concomitant]
     Active Substance: ALBUTEROL
  15. ZEMAIRA [Suspect]
     Active Substance: .ALPHA.1-PROTEINASE INHIBITOR HUMAN
     Indication: ALPHA-1 ANTI-TRYPSIN DEFICIENCY
     Dosage: 996 MG/VL
     Route: 042
  16. MARINOL [Concomitant]
     Active Substance: DRONABINOL
  17. LEVAQUIN [Concomitant]
     Active Substance: LEVOFLOXACIN
  18. CLARITIN [Concomitant]
     Active Substance: LORATADINE
  19. PREDNISONE. [Concomitant]
     Active Substance: PREDNISONE
  20. AZELASTINE OPHTHALMIC [Concomitant]
  21. MELATONIN [Concomitant]
     Active Substance: MELATONIN
  22. FLAXSEED [Concomitant]
     Active Substance: FLAX SEED
  23. CARDIZEM [Concomitant]
     Active Substance: DILTIAZEM HYDROCHLORIDE
  24. ZYRTEC [Concomitant]
     Active Substance: CETIRIZINE HYDROCHLORIDE
  25. FLONASE [Concomitant]
     Active Substance: FLUTICASONE PROPIONATE
  26. MAGNESIUM [Concomitant]
     Active Substance: MAGNESIUM
  27. XOPENEX [Concomitant]
     Active Substance: LEVALBUTEROL HYDROCHLORIDE
  28. DALIRESP [Concomitant]
     Active Substance: ROFLUMILAST
  29. ACETYLCYSTEINE. [Concomitant]
     Active Substance: ACETYLCYSTEINE

REACTIONS (1)
  - Sinusitis [Unknown]
